FAERS Safety Report 14987142 (Version 3)
Quarter: 2018Q2

REPORT INFORMATION
  Report Type: Report from Study
  Country: US (occurrence: US)
  Receive Date: 20180608
  Receipt Date: 20180626
  Transmission Date: 20180711
  Serious: No
  Sender: FDA-Public Use
  Company Number: US-AMGEN-USASL2018076425

PATIENT
  Age: 31 Year
  Sex: Male

DRUGS (1)
  1. ENBREL [Suspect]
     Active Substance: ETANERCEPT
     Indication: ANKYLOSING SPONDYLITIS
     Dosage: 50 MG, QWK
     Route: 065

REACTIONS (8)
  - Neck pain [Unknown]
  - Accidental exposure to product [Unknown]
  - Back pain [Unknown]
  - Underdose [Unknown]
  - Pain in extremity [Unknown]
  - Allergic cough [Unknown]
  - Wrong technique in product usage process [Unknown]
  - Injection site swelling [Unknown]

NARRATIVE: CASE EVENT DATE: 20180602
